FAERS Safety Report 5161126-0 (Version None)
Quarter: 2006Q4

REPORT INFORMATION
  Report Type: 
  Country: None (occurrence: None)
  Receive Date: 20061130
  Receipt Date: 20061102
  Transmission Date: 20070319
  Serious: Yes (Hospitalization)
  Sender: FDA-Public Use
  Company Number: GB-PURDUE-DEU_2006_0002623

PATIENT
  Age: 51 Year
  Sex: Female
  Weight: 89 kg

DRUGS (11)
  1. OXY/NALOXONE VS OXY/PLACEBO CR TAB [Suspect]
     Indication: PAIN
     Dosage: 30 MG, DAILY
     Route: 048
     Dates: start: 20061007, end: 20061026
  2. OXY/NALOXONE VS OXY/PLACEBO CR TAB [Suspect]
     Dosage: 30 MG, DAILY
     Route: 048
     Dates: start: 20060812, end: 20060929
  3. OXYCODONE HYDROCHLORIDE IR CAP 5 MG (STUDY) [Suspect]
     Indication: PAIN
     Dosage: 5 MG, PRN
     Route: 048
     Dates: start: 20060812, end: 20060927
  4. OMEPRAZOLE [Concomitant]
  5. AMLODIPINE [Concomitant]
  6. BENDROFLUAZIDE [Concomitant]
  7. MELOXICAM [Concomitant]
  8. FELBINAC [Concomitant]
  9. GABAPENTIN [Concomitant]
  10. AROXETINE HYDROCHORIDE [Concomitant]
  11. OLMESARTAN [Concomitant]

REACTIONS (1)
  - LOWER RESPIRATORY TRACT INFECTION [None]
